FAERS Safety Report 8533267-9 (Version None)
Quarter: 2012Q3

REPORT INFORMATION
  Report Type: 
  Country: None (occurrence: None)
  Receive Date: 20120717
  Receipt Date: 20120717
  Transmission Date: 20120928
  Serious: Yes (Other)
  Sender: FDA-Public Use
  Company Number: None

PATIENT
  Sex: Male

DRUGS (1)
  1. RESTASIS [Suspect]
     Indication: DRY EYE
     Dosage: 0.05% TWICE A WEEK SUBDERMAL
     Route: 059
     Dates: start: 20120710, end: 20120715

REACTIONS (2)
  - INSOMNIA [None]
  - SLEEP DISORDER [None]
